FAERS Safety Report 16003496 (Version 1)
Quarter: 2019Q1

REPORT INFORMATION
  Report Type: Spontaneous
  Country: DE (occurrence: DE)
  Receive Date: 20190224
  Receipt Date: 20190224
  Transmission Date: 20190418
  Serious: Yes (Other)
  Sender: FDA-Public Use
  Company Number: DE-DEXPHARM-20190131

PATIENT
  Age: 75 Year
  Sex: Female
  Weight: 56 kg

DRUGS (1)
  1. CHLORHEXAMED GEL 1% DENTAL GEL [Suspect]
     Active Substance: CHLORHEXIDINE GLUCONATE
     Indication: GINGIVITIS
     Dosage: 2 X DAILY LOCALLY ON THE INFLAMED, APPLY IN THE MOUTH
     Route: 048
     Dates: start: 20170312, end: 20170503

REACTIONS (1)
  - Squamous cell carcinoma of the oral cavity [Recovered/Resolved with Sequelae]

NARRATIVE: CASE EVENT DATE: 20170503
